FAERS Safety Report 14659324 (Version 1)
Quarter: 2018Q1

REPORT INFORMATION
  Report Type: Spontaneous
  Country: US (occurrence: US)
  Receive Date: 20180317
  Receipt Date: 20180317
  Transmission Date: 20180509
  Serious: No
  Sender: FDA-Public Use
  Company Number: None

PATIENT

DRUGS (10)
  1. GILENYA [Suspect]
     Active Substance: FINGOLIMOD HYDROCHLORIDE
     Indication: MULTIPLE SCLEROSIS
     Route: 048
     Dates: start: 20150904
  2. LYRICA [Concomitant]
     Active Substance: PREGABALIN
  3. HYDROCO/APAP [Concomitant]
     Active Substance: ACETAMINOPHEN\HYDROCODONE
  4. COPAXONE [Concomitant]
     Active Substance: GLATIRAMER ACETATE
  5. TRAMADOL. [Concomitant]
     Active Substance: TRAMADOL
  6. PROPO-N/APAP [Concomitant]
  7. CYCLOBENZAPR [Concomitant]
     Active Substance: CYCLOBENZAPRINE
  8. COUMADIN [Concomitant]
     Active Substance: WARFARIN SODIUM
  9. WARFARIN [Concomitant]
     Active Substance: WARFARIN
  10. SYNTHROID [Concomitant]
     Active Substance: LEVOTHYROXINE SODIUM

REACTIONS (5)
  - Fall [None]
  - Intentional overdose [None]
  - Depression [None]
  - Bladder disorder [None]
  - Drug dose omission [None]

NARRATIVE: CASE EVENT DATE: 20180219
